FAERS Safety Report 8606052-7 (Version None)
Quarter: 2012Q3

REPORT INFORMATION
  Report Type: 
  Country: None (occurrence: None)
  Receive Date: 20120820
  Receipt Date: 20120112
  Transmission Date: 20120928
  Serious: Yes (Hospitalization, Other)
  Sender: FDA-Public Use
  Company Number: US-ROCHE-1100975

PATIENT
  Age: 45 Year
  Sex: Male

DRUGS (7)
  1. HEPARIN [Concomitant]
  2. QUINIDINE HCL [Concomitant]
  3. MORPHINE SULFATE [Concomitant]
  4. LIDOCAINE [Concomitant]
  5. NITROGLYCERIN [Concomitant]
  6. ACTIVASE [Suspect]
     Indication: ACUTE MYOCARDIAL INFARCTION
  7. INDOCIN [Concomitant]

REACTIONS (4)
  - HYPOTENSION [None]
  - SUPRAVENTRICULAR TACHYCARDIA [None]
  - VENTRICULAR ARRHYTHMIA [None]
  - GENERAL SYMPTOM [None]
